FAERS Safety Report 4935234-0 (Version None)
Quarter: 2006Q1

REPORT INFORMATION
  Report Type: 
  Country: None (occurrence: None)
  Receive Date: 20060302
  Receipt Date: 20060221
  Transmission Date: 20060701
  Serious: Yes (Death)
  Sender: FDA-Public Use
  Company Number: USA-2006-0023626

PATIENT
  Age: 44 Year
  Sex: Male

DRUGS (4)
  1. OXYCODONE HCL [Suspect]
  2. HYDROCODONE BITARTRATE [Suspect]
  3. GABAPENTIN [Suspect]
  4. VENLAFAXINE HCL [Suspect]

REACTIONS (5)
  - ACCIDENTAL DEATH [None]
  - DRUG TOXICITY [None]
  - FIBROMYALGIA [None]
  - MULTIPLE DRUG OVERDOSE ACCIDENTAL [None]
  - SLEEP APNOEA SYNDROME [None]
